FAERS Safety Report 21801595 (Version 3)
Quarter: 2023Q1

REPORT INFORMATION
  Report Type: Report from Study
  Country: IL (occurrence: IL)
  Receive Date: 20221230
  Receipt Date: 20230202
  Transmission Date: 20230417
  Serious: Yes (Death, Other)
  Sender: FDA-Public Use
  Company Number: IL-TAKEDA-2022TUS103630

PATIENT
  Age: 45 Year
  Sex: Male

DRUGS (4)
  1. MOBOCERTINIB [Suspect]
     Active Substance: MOBOCERTINIB
     Indication: Non-small cell lung cancer
     Dosage: UNK
     Route: 065
     Dates: start: 202207, end: 202210
  2. MOBOCERTINIB [Suspect]
     Active Substance: MOBOCERTINIB
     Dosage: UNK UNK, QD
     Route: 048
     Dates: start: 20220901, end: 20221001
  3. ENOXAPARIN SODIUM [Concomitant]
     Active Substance: ENOXAPARIN SODIUM
     Indication: Pulmonary embolism
     Dosage: UNK
     Route: 065
  4. KEPPRA [Concomitant]
     Active Substance: LEVETIRACETAM
     Indication: Epilepsy
     Dosage: UNK
     Route: 065

REACTIONS (12)
  - Malignant pleural effusion [Fatal]
  - Lung neoplasm malignant [Fatal]
  - Cerebral artery occlusion [Fatal]
  - Embolism arterial [Fatal]
  - Peripheral artery thrombosis [Fatal]
  - Metastases to central nervous system [Fatal]
  - Metastases to spinal cord [Fatal]
  - Metastases to liver [Fatal]
  - Pulmonary embolism [Fatal]
  - Pulmonary infarction [Fatal]
  - Peripheral vascular disorder [Fatal]
  - Seizure [Fatal]
